FAERS Safety Report 18696629 (Version 2)
Quarter: 2021Q3

REPORT INFORMATION
  Report Type: Report from Study
  Country: US (occurrence: US)
  Receive Date: 20210104
  Receipt Date: 20210819
  Transmission Date: 20211014
  Serious: Yes (Other)
  Sender: FDA-Public Use
  Company Number: US-TAKEDA-US202032076

PATIENT
  Sex: Female

DRUGS (1)
  1. CUVITRU [Suspect]
     Active Substance: HUMAN IMMUNOGLOBULIN G
     Indication: IMMUNODEFICIENCY COMMON VARIABLE
     Dosage: UNK
     Route: 065

REACTIONS (8)
  - Skin disorder [Unknown]
  - Tendonitis [Unknown]
  - Chronic fatigue syndrome [Unknown]
  - Lung neoplasm malignant [Unknown]
  - Weight increased [Unknown]
  - Cerebral disorder [Unknown]
  - Weight decreased [Unknown]
  - Poor venous access [Unknown]
